FAERS Safety Report 17031624 (Version 1)
Quarter: 2019Q4

REPORT INFORMATION
  Report Type: Spontaneous
  Country: FR (occurrence: FR)
  Receive Date: 20191114
  Receipt Date: 20191114
  Transmission Date: 20200122
  Serious: Yes (Hospitalization)
  Sender: FDA-Public Use
  Company Number: FR-ZYDUS-043024

PATIENT
  Age: 16 Year
  Sex: Female
  Weight: 44.9 kg

DRUGS (1)
  1. SERTRALINE [Suspect]
     Active Substance: SERTRALINE HYDROCHLORIDE
     Indication: DEPRESSION
     Route: 048
     Dates: start: 20190319, end: 20190905

REACTIONS (2)
  - Aggression [Recovered/Resolved with Sequelae]
  - Major depression [Recovered/Resolved]

NARRATIVE: CASE EVENT DATE: 20190413
